FAERS Safety Report 7714422-4 (Version None)
Quarter: 2011Q3

REPORT INFORMATION
  Report Type: 
  Country: None (occurrence: None)
  Receive Date: 20110829
  Receipt Date: 20100908
  Transmission Date: 20111222
  Serious: Yes (Hospitalization)
  Sender: FDA-Public Use
  Company Number: GB-RANBAXY-2010R1-38224

PATIENT

DRUGS (2)
  1. CIPROFLOXACIN [Suspect]
     Dosage: UNK
     Route: 048
  2. CIPROFLOXACIN [Suspect]
     Indication: GASTROENTERITIS SALMONELLA
     Dosage: UNK
     Route: 042

REACTIONS (2)
  - COLECTOMY [None]
  - SPLENECTOMY [None]
